FAERS Safety Report 5932369-0 (Version None)
Quarter: 2008Q4

REPORT INFORMATION
  Report Type: 
  Country: None (occurrence: None)
  Receive Date: 20081023
  Receipt Date: 20060324
  Transmission Date: 20090506
  Serious: Yes (Hospitalization, Other)
  Sender: FDA-Public Use
  Company Number: 2006AL001954

PATIENT
  Age: 32 Year
  Sex: Female

DRUGS (2)
  1. NIFEDIPINE [Suspect]
     Dates: start: 20060205
  2. LAMICTAL [Concomitant]

REACTIONS (3)
  - DRUG EXPOSURE DURING PREGNANCY [None]
  - GRAND MAL CONVULSION [None]
  - PREMATURE LABOUR [None]
